FAERS Safety Report 7517116-3 (Version None)
Quarter: 2011Q2

REPORT INFORMATION
  Report Type: 
  Country: None (occurrence: None)
  Receive Date: 20110601
  Receipt Date: 20110525
  Transmission Date: 20111010
  Serious: Yes (Death)
  Sender: FDA-Public Use
  Company Number: JP-UCBSA-024669

PATIENT
  Sex: Male

DRUGS (8)
  1. AMANTADINE HCL [Concomitant]
     Dates: start: 20100511, end: 20101226
  2. ASPIRIN [Concomitant]
     Dates: start: 20040601, end: 20101226
  3. ROTIGOTINE [Suspect]
     Indication: PARKINSON'S DISEASE
     Dosage: 2 MG-16 MG/24 HOURS
     Route: 062
     Dates: start: 20100519, end: 20100701
  4. LEVODOPA_BENSERAZIDE HYDROCHLORIDE [Concomitant]
     Dates: start: 20100429, end: 20101226
  5. ROTIGOTINE [Suspect]
     Route: 062
     Dates: start: 20100701, end: 20101226
  6. MAGNESIUM OXIDE [Concomitant]
     Dates: start: 20100508, end: 20101226
  7. SELEGILINE HYDROCHLORIDE [Concomitant]
     Dates: start: 20051001, end: 20101226
  8. IMIDAPRIL HYDROCHLORIDE [Concomitant]
     Dates: start: 20100531, end: 20101226

REACTIONS (1)
  - SUDDEN DEATH [None]
